FAERS Safety Report 4918209-7 (Version None)
Quarter: 2006Q1

REPORT INFORMATION
  Report Type: 
  Country: None (occurrence: None)
  Receive Date: 20060215
  Receipt Date: 20060208
  Transmission Date: 20060701
  Serious: Yes (Other)
  Sender: FDA-Public Use
  Company Number: ESWYE376209FEB06

PATIENT
  Age: 92 Year
  Sex: Male

DRUGS (5)
  1. VENLAFAXINE HCL [Suspect]
     Indication: DEPRESSION
     Dosage: 75 MG 1X PER 1 DAY ORAL
     Route: 048
     Dates: start: 20051107, end: 20051115
  2. DUPHALAC [Concomitant]
  3. FOSAMAX [Concomitant]
  4. CALCIUM PHOSPHATE (CALCIUM PHOSPHATE) [Concomitant]
  5. COLECALCIFEROL (COLECALCIFEROL) [Concomitant]

REACTIONS (4)
  - CONFUSIONAL STATE [None]
  - FALL [None]
  - HYPONATRAEMIA [None]
  - URINARY RETENTION [None]
